FAERS Safety Report 5873986-6 (Version None)
Quarter: 2008Q3

REPORT INFORMATION
  Report Type: 
  Country: None (occurrence: None)
  Receive Date: 20080905
  Receipt Date: 20080905
  Transmission Date: 20090109
  Serious: No
  Sender: FDA-Public Use
  Company Number: None

PATIENT
  Age: 53 Year
  Sex: Female
  Weight: 79.3795 kg

DRUGS (1)
  1. ADVAIR DISKUS 250/50 [Suspect]
     Indication: ASTHMA
     Dosage: ONE PUFF ONCE A DAY PO
     Route: 048

REACTIONS (4)
  - DYSPHAGIA [None]
  - HYPOPHAGIA [None]
  - THROAT TIGHTNESS [None]
  - VOMITING [None]
